FAERS Safety Report 22623897 (Version 1)
Quarter: 2023Q2

REPORT INFORMATION
  Report Type: Spontaneous
  Country: US (occurrence: US)
  Receive Date: 20230621
  Receipt Date: 20230621
  Transmission Date: 20230721
  Serious: No
  Sender: FDA-Public Use
  Company Number: US-PROVENTION BIO, INC.-US-PRAG-23-00016

PATIENT
  Age: 10 Year
  Sex: Male
  Weight: 29.8 kg

DRUGS (6)
  1. TZIELD [Suspect]
     Active Substance: TEPLIZUMAB-MZWV
     Indication: Diabetes prophylaxis
     Dosage: 65 MICROGRAM/SQ. METER, SINGLE
     Route: 042
     Dates: start: 20230227, end: 20230227
  2. TZIELD [Suspect]
     Active Substance: TEPLIZUMAB-MZWV
     Dosage: 125 MICROGRAM/SQ. METER, SINGLE
     Route: 042
     Dates: start: 20230228, end: 20230228
  3. TZIELD [Suspect]
     Active Substance: TEPLIZUMAB-MZWV
     Dosage: 250 MICROGRAM/SQ. METER, SINGLE
     Route: 042
     Dates: start: 20230301, end: 20230301
  4. TZIELD [Suspect]
     Active Substance: TEPLIZUMAB-MZWV
     Dosage: 500 MICROGRAM/SQ. METER, SINGLE
     Route: 042
     Dates: start: 20230302, end: 20230302
  5. TZIELD [Suspect]
     Active Substance: TEPLIZUMAB-MZWV
     Dosage: 1030 MICROGRAM/SQ. METER, QD
     Route: 042
     Dates: start: 20230303, end: 20230307
  6. TZIELD [Suspect]
     Active Substance: TEPLIZUMAB-MZWV
     Dosage: 1030 MICROGRAM/SQ. METER, QD
     Route: 042
     Dates: start: 20230309, end: 20230313

REACTIONS (2)
  - Cytokine release syndrome [Recovered/Resolved]
  - Rash macular [Recovered/Resolved]

NARRATIVE: CASE EVENT DATE: 20230303
